FAERS Safety Report 8481881-1 (Version None)
Quarter: 2012Q3

REPORT INFORMATION
  Report Type: 
  Country: None (occurrence: None)
  Receive Date: 20120702
  Receipt Date: 20120621
  Transmission Date: 20120928
  Serious: Yes (Death, Hospitalization, Other)
  Sender: FDA-Public Use
  Company Number: DK-BAYER-2011-041700

PATIENT
  Age: 73 Year
  Sex: Male
  Weight: 81 kg

DRUGS (12)
  1. ASPIRIN [Suspect]
     Dosage: 150 MG, QD
     Route: 048
     Dates: start: 20030127, end: 20030301
  2. HYDROXYUREA [Suspect]
     Indication: ESSENTIAL THROMBOCYTHAEMIA
     Dosage: 500 MG, QD
     Route: 048
     Dates: start: 20090921, end: 20090922
  3. DANAZOL [Concomitant]
     Indication: ANAEMIA
     Dosage: 200 MG, BID
     Route: 048
     Dates: start: 20091001, end: 20091110
  4. ANAGRELIDE HCL [Suspect]
     Dosage: .5 MG, BID
     Route: 048
     Dates: start: 20091109, end: 20091117
  5. ANAGRELIDE HCL [Suspect]
     Indication: ESSENTIAL THROMBOCYTHAEMIA
     Dosage: ALTERNATING BETWEEN A DAILY DOSE OF 1 MG AND 3.5 MG
     Route: 048
     Dates: start: 20000628, end: 20090602
  6. ANAGRELIDE HCL [Suspect]
     Dosage: .5 MG, QID
     Route: 048
     Dates: start: 20090602, end: 20090921
  7. ASPIRIN AND DIPYRIDAMOLE [Suspect]
     Indication: ESSENTIAL THROMBOCYTHAEMIA
     Dosage: 1 DF, BID
     Route: 048
     Dates: start: 20030127, end: 20050301
  8. ASPIRIN AND DIPYRIDAMOLE [Suspect]
     Dosage: 1 DF, QD
     Route: 048
     Dates: start: 20050301, end: 20090921
  9. CITALOPRAM HYDROBROMIDE [Concomitant]
     Indication: DEPRESSION
     Dosage: 10 MG, QD
     Route: 048
     Dates: start: 20030127
  10. ASPIRIN [Suspect]
     Indication: ESSENTIAL THROMBOCYTHAEMIA
     Dosage: 150 MG, QD
     Route: 048
     Dates: start: 20000628, end: 20030125
  11. ASPIRIN [Suspect]
     Dosage: 75 MG, QD
     Route: 048
     Dates: start: 20091230, end: 20100708
  12. HYDROXYUREA [Suspect]
     Dosage: 500 MG, QD
     Route: 048
     Dates: start: 20091012, end: 20091102

REACTIONS (9)
  - CARDIAC FAILURE [None]
  - GENERALISED OEDEMA [None]
  - CEREBROVASCULAR ACCIDENT [None]
  - SEPSIS [None]
  - CARDIOMEGALY [None]
  - ANAEMIA [None]
  - GENERAL PHYSICAL HEALTH DETERIORATION [None]
  - CARDIOMYOPATHY [None]
  - PERICARDIAL EFFUSION [None]
